FAERS Safety Report 23434976 (Version 1)
Quarter: 2024Q1

REPORT INFORMATION
  Report Type: Spontaneous
  Country: US (occurrence: US)
  Receive Date: 20240123
  Receipt Date: 20240123
  Transmission Date: 20240409
  Serious: No
  Sender: FDA-Public Use
  Company Number: US-NOVOPROD-1091261

PATIENT
  Sex: Female

DRUGS (1)
  1. WEGOVY [Suspect]
     Active Substance: SEMAGLUTIDE
     Indication: Weight control
     Dosage: 1.7 MG QW
     Route: 058
     Dates: start: 2023

REACTIONS (4)
  - Ocular discomfort [Unknown]
  - Injection site bruising [Unknown]
  - Injection site discharge [Unknown]
  - Device failure [Unknown]

NARRATIVE: CASE EVENT DATE: 20230101
